FAERS Safety Report 9539862 (Version 1)
Quarter: 2013Q3

REPORT INFORMATION
  Report Type: Spontaneous
  Country: US (occurrence: US)
  Receive Date: 20130920
  Receipt Date: 20130920
  Transmission Date: 20140515
  Serious: Yes (Death)
  Sender: FDA-Public Use
  Company Number: US-NAPPMUNDI-USA-2011-0064044

PATIENT
  Age: 23 Year
  Sex: Male

DRUGS (4)
  1. HYDROMORPHONE HCL (SIMILAR TO 19-892) [Suspect]
     Indication: PRODUCT USED FOR UNKNOWN INDICATION
  2. FENTANYL [Suspect]
     Indication: PRODUCT USED FOR UNKNOWN INDICATION
  3. XANAX [Suspect]
     Indication: PRODUCT USED FOR UNKNOWN INDICATION
  4. ANTIDEPRESSANTS [Suspect]
     Indication: PRODUCT USED FOR UNKNOWN INDICATION

REACTIONS (2)
  - Accidental overdose [Fatal]
  - Respiratory depression [Fatal]
